FAERS Safety Report 23724937 (Version 1)
Quarter: 2024Q2

REPORT INFORMATION
  Report Type: Spontaneous
  Country: US (occurrence: US)
  Receive Date: 20240410
  Receipt Date: 20240410
  Transmission Date: 20240716
  Serious: No
  Sender: FDA-Public Use
  Company Number: US-MLMSERVICE-20240327-4913144-1

PATIENT
  Sex: Male

DRUGS (1)
  1. XYZAL ALLERGY 24HR [Suspect]
     Active Substance: LEVOCETIRIZINE DIHYDROCHLORIDE
     Indication: Solar urticaria
     Dosage: LIMITED USE/MAXIMUM DOSE

REACTIONS (2)
  - Treatment failure [Unknown]
  - Somnolence [Unknown]
